FAERS Safety Report 7000710-6 (Version None)
Quarter: 2010Q3

REPORT INFORMATION
  Report Type: 
  Country: None (occurrence: None)
  Receive Date: 20100920
  Receipt Date: 20100405
  Transmission Date: 20110219
  Serious: No
  Sender: FDA-Public Use
  Company Number: US-ASTRAZENECA-2010SE14805

PATIENT
  Age: 51 Year
  Sex: Female
  Weight: 88.5 kg

DRUGS (3)
  1. SEROQUEL [Suspect]
     Indication: BIPOLAR DISORDER
     Route: 048
     Dates: start: 20020101
  2. SEROQUEL [Suspect]
     Route: 048
     Dates: start: 20100301
  3. SEROQUEL [Suspect]
     Route: 048
     Dates: start: 20100301

REACTIONS (3)
  - HYPOMANIA [None]
  - RESTLESS LEGS SYNDROME [None]
  - SLEEP DISORDER [None]
